FAERS Safety Report 7102643-3 (Version None)
Quarter: 2010Q4

REPORT INFORMATION
  Report Type: 
  Country: None (occurrence: None)
  Receive Date: 20101115
  Receipt Date: 20101104
  Transmission Date: 20110411
  Serious: Yes (Other)
  Sender: FDA-Public Use
  Company Number: BR-ASTRAZENECA-2010SE52933

PATIENT
  Age: 458 Month
  Sex: Male
  Weight: 85 kg

DRUGS (4)
  1. METOPROLOL SUCCINATE [Suspect]
     Indication: ARRHYTHMIA
     Route: 048
     Dates: start: 20100901
  2. EXPECTIL [Concomitant]
     Dates: start: 20101001
  3. VICK MEL [Concomitant]
     Dates: start: 20101001
  4. LORATADINE [Concomitant]
     Dates: start: 20101001, end: 20101001

REACTIONS (3)
  - DYSPHONIA [None]
  - OEDEMA MOUTH [None]
  - VERTIGO [None]
